FAERS Safety Report 4269744-9 (Version None)
Quarter: 2004Q1

REPORT INFORMATION
  Report Type: 
  Country: None (occurrence: None)
  Receive Date: 20040109
  Receipt Date: 20040105
  Transmission Date: 20041129
  Serious: Yes (Other)
  Sender: FDA-Public Use
  Company Number: 200308614

PATIENT
  Age: 45 Year
  Sex: Female

DRUGS (4)
  1. TYLENOL [Suspect]
     Indication: NECK PAIN
     Dosage: 1000 MG ONCE PO
     Route: 048
  2. TAMOFEN [Concomitant]
  3. CENTRUM (MULTIVITAMIN) [Concomitant]
  4. CALCIUM/VITAMIN D [Concomitant]

REACTIONS (1)
  - ANGIONEUROTIC OEDEMA [None]
